FAERS Safety Report 25423246 (Version 1)
Quarter: 2025Q2

REPORT INFORMATION
  Report Type: Spontaneous
  Country: IN (occurrence: IN)
  Receive Date: 20250611
  Receipt Date: 20250611
  Transmission Date: 20250716
  Serious: Yes (Other)
  Sender: ENDO
  Company Number: IN-ENDO USA, INC.-2025-001382

PATIENT
  Age: 34 Year
  Sex: Male

DRUGS (1)
  1. LEVETIRACETAM [Suspect]
     Active Substance: LEVETIRACETAM
     Indication: Dizziness
     Route: 065

REACTIONS (2)
  - Catatonia [Recovered/Resolved]
  - Off label use [Unknown]
